FAERS Safety Report 15344300 (Version 8)
Quarter: 2020Q3

REPORT INFORMATION
  Report Type: Report from Study
  Country: CH (occurrence: CH)
  Receive Date: 20180903
  Receipt Date: 20181101
  Transmission Date: 20201105
  Serious: Yes (Hospitalization)
  Sender: FDA-Public Use
  Company Number: CH-ROCHE-2176354

PATIENT
  Age: 57 Year
  Sex: Female
  Weight: 55 kg

DRUGS (5)
  1. BEVACIZUMAB. [Suspect]
     Active Substance: BEVACIZUMAB
     Indication: OVARIAN CANCER
     Dosage: ON 26/JUN/2018, SHE RECEVIED THE MOST RECENT DOSE (945 MG) OF BEVACIZUMAB PRIOR THE SERIOUS ADVERSE
     Route: 042
     Dates: start: 20180404, end: 20180626
  2. BLINDED ASPIRIN [Suspect]
     Active Substance: ASPIRIN
     Indication: OVARIAN CANCER
     Dosage: ON 16/JUL/2018, SHE RECEVIED THE MOST RECENT DOSE (320 MG) OF ASPIRIN PRIOR THE SERIOUS ADVERSE EVEN
     Route: 048
     Dates: start: 20180404, end: 20180716
  3. PACLITAXEL. [Concomitant]
     Active Substance: PACLITAXEL
     Route: 065
     Dates: start: 20180719
  4. ATEZOLIZUMAB. [Suspect]
     Active Substance: ATEZOLIZUMAB
     Indication: OVARIAN CANCER
     Dosage: ON 26/JUN/2018, SHE RECEVIED THE MOST RECENT DOSE (1200 MG) OF ATEZOLIZUMAB PRIOR THE SERIOUS ADVERS
     Route: 042
     Dates: start: 20180404, end: 20180626
  5. CARBOPLATIN. [Concomitant]
     Active Substance: CARBOPLATIN
     Route: 065
     Dates: start: 20180719

REACTIONS (2)
  - Large intestine perforation [Recovered/Resolved with Sequelae]
  - Perihepatic abscess [Recovered/Resolved with Sequelae]

NARRATIVE: CASE EVENT DATE: 20180826
